FAERS Safety Report 15259275 (Version 3)
Quarter: 2019Q1

REPORT INFORMATION
  Report Type: Spontaneous
  Country: US (occurrence: US)
  Receive Date: 20180809
  Receipt Date: 20190227
  Transmission Date: 20190417
  Serious: Yes (Death, Hospitalization, Disabling, Other)
  Sender: FDA-Public Use
  Company Number: US-BRISTOL-MYERS SQUIBB COMPANY-BMS-2018-073540

PATIENT
  Age: 93 Year
  Sex: Male
  Weight: 74.3 kg

DRUGS (2)
  1. ELIQUIS [Suspect]
     Active Substance: APIXABAN
     Indication: CEREBROVASCULAR ACCIDENT PROPHYLAXIS
     Dosage: 5 MG, QD
     Route: 048
     Dates: start: 2014, end: 20170920
  2. JARDIANCE [Concomitant]
     Active Substance: EMPAGLIFLOZIN
     Indication: CARDIAC FAILURE
     Dosage: UNK
     Route: 048
     Dates: start: 20170914, end: 20171001

REACTIONS (6)
  - Diverticulitis [Fatal]
  - Sepsis [Fatal]
  - Gastrointestinal haemorrhage [Fatal]
  - Abdominal pain [Fatal]
  - Atrial fibrillation [Recovered/Resolved]
  - Cholecystitis [Unknown]

NARRATIVE: CASE EVENT DATE: 20170301
